FAERS Safety Report 21014305 (Version 1)
Quarter: 2022Q2

REPORT INFORMATION
  Report Type: Spontaneous
  Country: KR (occurrence: KR)
  Receive Date: 20220627
  Receipt Date: 20220627
  Transmission Date: 20220720
  Serious: Yes (Other)
  Sender: FDA-Public Use
  Company Number: KR-NOVEN PHARMACEUTICALS, INC.-2022-NOV-KR000592

PATIENT
  Age: 55 Year
  Sex: Male

DRUGS (12)
  1. METHYLPHENIDATE [Suspect]
     Active Substance: METHYLPHENIDATE
     Indication: Conversion disorder
     Dosage: 7.5 MG, DAILY
     Route: 065
  2. METHYLPHENIDATE [Suspect]
     Active Substance: METHYLPHENIDATE
     Dosage: UNKNOWN (LOWER DOSE)
     Route: 065
  3. VENLAFAXINE [Suspect]
     Active Substance: VENLAFAXINE HYDROCHLORIDE
     Indication: Conversion disorder
     Dosage: 75 MG, DAILY
     Route: 065
  4. VENLAFAXINE [Suspect]
     Active Substance: VENLAFAXINE HYDROCHLORIDE
     Dosage: UNKNOWN (LOWER DOSE)
     Route: 065
  5. TIANEPTINE SODIUM [Suspect]
     Active Substance: TIANEPTINE SODIUM
     Indication: Conversion disorder
     Dosage: 37.5 MG, DAILY
     Route: 065
  6. TIANEPTINE SODIUM [Suspect]
     Active Substance: TIANEPTINE SODIUM
     Dosage: UNKNOWN (LOWER DOSE)
     Route: 065
  7. ROPINIROLE [Suspect]
     Active Substance: ROPINIROLE
     Indication: Conversion disorder
     Dosage: 1.5 MG DAILY, UNKNOWN
     Route: 065
  8. ROPINIROLE [Suspect]
     Active Substance: ROPINIROLE
     Dosage: UNKNOWN (LOWER DOSE)
     Route: 065
  9. CARBIDOPA\LEVODOPA [Suspect]
     Active Substance: CARBIDOPA\LEVODOPA
     Indication: Conversion disorder
     Dosage: 75 MG/ 750 MG, UNKNOWN
     Route: 065
  10. CARBIDOPA\LEVODOPA [Suspect]
     Active Substance: CARBIDOPA\LEVODOPA
     Dosage: UNKNOWN (LOWER DOSE)
     Route: 065
  11. BROMOCRIPTINE MESYLATE [Suspect]
     Active Substance: BROMOCRIPTINE MESYLATE
     Indication: Conversion disorder
     Dosage: 7.5 MG DAILY, UNKNOWN
     Route: 065
  12. BROMOCRIPTINE MESYLATE [Suspect]
     Active Substance: BROMOCRIPTINE MESYLATE
     Dosage: UNKNOWN (LOWER DOSE)
     Route: 065

REACTIONS (2)
  - Stress cardiomyopathy [Recovered/Resolved]
  - Serotonin syndrome [Recovered/Resolved]
